FAERS Safety Report 4721325-6 (Version None)
Quarter: 2005Q3

REPORT INFORMATION
  Report Type: 
  Country: None (occurrence: None)
  Receive Date: 20050721
  Receipt Date: 20040622
  Transmission Date: 20060218
  Serious: No
  Sender: FDA-Public Use
  Company Number: US-BRISTOL-MYERS SQUIBB COMPANY-12622346

PATIENT
  Age: 76 Year
  Sex: Male
  Weight: 86 kg

DRUGS (5)
  1. COUMADIN [Suspect]
     Indication: THROMBOSIS
     Dosage: 5 MG X 2 TIMES A WEEK AND 2.5 MG X 5 TIMES A WEEK FOR 6 MONTHS.
     Route: 048
  2. VITAMINS [Concomitant]
  3. MAXZIDE [Concomitant]
  4. POTASSIUM CHLORIDE [Concomitant]
  5. ASPIRIN [Concomitant]

REACTIONS (1)
  - RASH PRURITIC [None]
